FAERS Safety Report 10257968 (Version 1)
Quarter: 2014Q2

REPORT INFORMATION
  Report Type: Spontaneous
  Country: US (occurrence: US)
  Receive Date: 20140625
  Receipt Date: 20140625
  Transmission Date: 20141212
  Serious: No
  Sender: FDA-Public Use
  Company Number: US-BAYER-2014-094698

PATIENT
  Age: 79 Year
  Sex: Female

DRUGS (2)
  1. ALEVE CAPLET [Suspect]
     Indication: ANALGESIC THERAPY
     Dosage: 2 DF, BID
     Route: 048
     Dates: start: 20140530
  2. VICODIN [Concomitant]

REACTIONS (3)
  - Wrong technique in drug usage process [None]
  - Extra dose administered [None]
  - Incorrect drug administration duration [None]
